FAERS Safety Report 7926945-3 (Version None)
Quarter: 2011Q4

REPORT INFORMATION
  Report Type: 
  Country: None (occurrence: None)
  Receive Date: 20111118
  Receipt Date: 20111109
  Transmission Date: 20120403
  Serious: Yes (Hospitalization, Other)
  Sender: FDA-Public Use
  Company Number: JP-BAYER-2011-047771

PATIENT
  Age: 80 Year
  Sex: Male
  Weight: 70 kg

DRUGS (3)
  1. LANSOPRAZOLE [Concomitant]
     Dosage: DAILY DOSE 15 MG
     Route: 048
  2. HIRUDOID [Concomitant]
     Indication: PROPHYLAXIS
     Dosage: UNK
     Route: 061
     Dates: start: 20110418, end: 20110601
  3. SORAFENIB (RAF KINASE INHIBITOR) [Suspect]
     Indication: HEPATIC NEOPLASM MALIGNANT
     Dosage: 400 MG, QD
     Route: 048
     Dates: start: 20110418, end: 20110601

REACTIONS (4)
  - HEPATIC ENCEPHALOPATHY [None]
  - HYPERTENSION [None]
  - CEREBRAL INFARCTION [None]
  - AMMONIA INCREASED [None]
